FAERS Safety Report 5707961-9 (Version None)
Quarter: 2008Q2

REPORT INFORMATION
  Report Type: 
  Country: None (occurrence: None)
  Receive Date: 20080417
  Receipt Date: 20080409
  Transmission Date: 20081010
  Serious: Yes (Hospitalization)
  Sender: FDA-Public Use
  Company Number: PHHY2008JP02823

PATIENT
  Age: 29 Year
  Sex: Male

DRUGS (7)
  1. SIMULECT [Suspect]
     Indication: RENAL TRANSPLANT
     Dosage: 20 MG, ONCE/SINGLE
     Route: 042
     Dates: start: 20050406, end: 20050406
  2. SIMULECT [Suspect]
     Dosage: 20 MG, ONCE/SINGLE
     Dates: start: 20050410, end: 20050410
  3. TACROLIMUS [Suspect]
     Indication: RENAL TRANSPLANT
     Dosage: 6 MG/DAY
     Route: 048
     Dates: start: 20050406
  4. ANTIMETABOLITES [Concomitant]
     Indication: IMMUNOSUPPRESSION
  5. CELLCEPT [Suspect]
     Indication: RENAL TRANSPLANT
     Dosage: 3 G/DAY
     Route: 048
     Dates: start: 20050406
  6. PREDONINE [Suspect]
     Indication: RENAL TRANSPLANT
     Dosage: 60 MG/DAY
     Route: 048
     Dates: start: 20050406
  7. METHYLPREDNISOLONE [Concomitant]
     Indication: RENAL TRANSPLANT

REACTIONS (4)
  - DIVERTICULUM [None]
  - ENTEROVESICAL FISTULA [None]
  - SURGERY [None]
  - URINARY TRACT INFECTION [None]
